FAERS Safety Report 25100038 (Version 1)
Quarter: 2025Q1

REPORT INFORMATION
  Report Type: Spontaneous
  Country: HU (occurrence: HU)
  Receive Date: 20250320
  Receipt Date: 20250320
  Transmission Date: 20250409
  Serious: Yes (Death, Other)
  Sender: PFIZER
  Company Number: HU-ASTELLAS-2025-AER-014072

PATIENT
  Age: 56 Year
  Sex: Female

DRUGS (5)
  1. CYTARABINE [Suspect]
     Active Substance: CYTARABINE
  2. IDARUBICIN HYDROCHLORIDE [Suspect]
     Active Substance: IDARUBICIN HYDROCHLORIDE
  3. XOSPATA [Suspect]
     Active Substance: GILTERITINIB
     Dates: start: 20240320
  4. CLADRIBINE [Suspect]
     Active Substance: CLADRIBINE
  5. VENETOCLAX [Suspect]
     Active Substance: VENETOCLAX

REACTIONS (5)
  - Death [Fatal]
  - Pancytopenia [Unknown]
  - Febrile neutropenia [Unknown]
  - Pseudomonas infection [Unknown]
  - Pneumonia fungal [Unknown]
